FAERS Safety Report 7869761-3 (Version None)
Quarter: 2011Q4

REPORT INFORMATION
  Report Type: 
  Country: None (occurrence: None)
  Receive Date: 20111027
  Receipt Date: 20111007
  Transmission Date: 20120403
  Serious: No
  Sender: FDA-Public Use
  Company Number: CRC-11-249

PATIENT
  Sex: Female

DRUGS (1)
  1. MIDRIN CAPSULES  MFR: CARACO [Suspect]

REACTIONS (2)
  - PRODUCT SUBSTITUTION ISSUE [None]
  - DRUG EFFECT DELAYED [None]
